FAERS Safety Report 21717558 (Version 1)
Quarter: 2022Q4

REPORT INFORMATION
  Report Type: Other
  Country: US (occurrence: US)
  Receive Date: 20221212
  Receipt Date: 20221212
  Transmission Date: 20230113
  Serious: No
  Sender: FDA-Public Use
  Company Number: US-GBT-014914

PATIENT
  Age: 35 Year
  Sex: Female

DRUGS (2)
  1. OXBRYTA [Suspect]
     Active Substance: VOXELOTOR
     Indication: Sickle cell disease
     Route: 048
     Dates: start: 20220720
  2. red blood cell transfusions [Concomitant]

REACTIONS (5)
  - Sickle cell anaemia with crisis [Recovered/Resolved]
  - Abdominal discomfort [Unknown]
  - Rash pruritic [Recovered/Resolved]
  - Haemochromatosis [Unknown]
  - Headache [Not Recovered/Not Resolved]

NARRATIVE: CASE EVENT DATE: 20220725
